FAERS Safety Report 8406222-7 (Version None)
Quarter: 2012Q2

REPORT INFORMATION
  Report Type: 
  Country: None (occurrence: None)
  Receive Date: 20120323
  Receipt Date: 20110810
  Transmission Date: 20120825
  Serious: Yes (Other)
  Sender: FDA-Public Use
  Company Number: 163-21880-11052448

PATIENT
  Age: 74 Year
  Sex: Male

DRUGS (6)
  1. BLOOD (BLOOD AND RELATED PRODUCTS) [Concomitant]
  2. REVLIMID [Suspect]
     Indication: MYELODYSPLASTIC SYNDROME
     Dosage: 15 MG, DAILY FOR 21 DAYS + 7 DAYS OFF, PO; 10 MG, QD DAYS 1-21, PO
     Route: 048
     Dates: start: 20110524, end: 20110613
  3. REVLIMID [Suspect]
     Indication: MYELODYSPLASTIC SYNDROME
     Dosage: 15 MG, DAILY FOR 21 DAYS + 7 DAYS OFF, PO; 10 MG, QD DAYS 1-21, PO
     Route: 048
     Dates: start: 20110412, end: 20110524
  4. ASPIRIN [Concomitant]
  5. PLAVIX [Concomitant]
  6. LASIX [Concomitant]

REACTIONS (5)
  - FLUID RETENTION [None]
  - OROPHARYNGEAL PAIN [None]
  - RASH GENERALISED [None]
  - DIARRHOEA [None]
  - WEIGHT INCREASED [None]
